FAERS Safety Report 13441810 (Version 2)
Quarter: 2017Q2

REPORT INFORMATION
  Report Type: Report from Study
  Country: RU (occurrence: RU)
  Receive Date: 20170414
  Receipt Date: 20170420
  Transmission Date: 20170830
  Serious: Yes (Other)
  Sender: FDA-Public Use
  Company Number: RU-ROCHE-1917674

PATIENT

DRUGS (2)
  1. OXALIPLATIN. [Suspect]
     Active Substance: OXALIPLATIN
     Indication: COLORECTAL CANCER
     Dosage: ON DAYS 1, 8, 22, 29 DAYS OF RADIATION THERAPY
     Route: 042
  2. CAPECITABINE. [Suspect]
     Active Substance: CAPECITABINE
     Indication: COLORECTAL CANCER
     Dosage: ON DAYS 1 TO 14 AND 22 TO 33 DAYS OF RADIATION THERAPY
     Route: 065

REACTIONS (12)
  - Fatigue [Unknown]
  - Nausea [Unknown]
  - Thrombocytopenia [Unknown]
  - Diarrhoea [Unknown]
  - Anaemia [Unknown]
  - Leukopenia [Unknown]
  - Radiation proctitis [Unknown]
  - Dysuria [Unknown]
  - Radiation skin injury [Unknown]
  - Myocardial ischaemia [Unknown]
  - Neutropenia [Unknown]
  - Vomiting [Unknown]
